FAERS Safety Report 11453349 (Version 1)
Quarter: 2015Q3

REPORT INFORMATION
  Report Type: Spontaneous
  Country: US (occurrence: US)
  Receive Date: 20150831
  Receipt Date: 20150831
  Transmission Date: 20151125
  Serious: No
  Sender: FDA-Public Use
  Company Number: US-ELI_LILLY_AND_COMPANY-US200911002517

PATIENT
  Age: 64 Year
  Sex: Female
  Weight: 72.56 kg

DRUGS (5)
  1. RESTORIL [Concomitant]
     Active Substance: TEMAZEPAM
     Dates: end: 20090923
  2. CHLORMEZANONE [Concomitant]
     Active Substance: CHLORMEZANONE
     Indication: SLEEP DISORDER
     Dosage: 30 MG, DAILY (1/D)
     Route: 048
     Dates: end: 20090923
  3. OLMESARTAN [Concomitant]
     Active Substance: OLMESARTAN
     Indication: HYPERTENSION
     Dosage: 20 MG, DAILY (1/D)
     Route: 048
  4. CYMBALTA [Suspect]
     Active Substance: DULOXETINE HYDROCHLORIDE
     Indication: DEPRESSION
     Dosage: 60 MG, DAILY (1/D)
     Route: 048
     Dates: end: 20090923
  5. HUMIRA /USA/ [Concomitant]
     Indication: PSORIATIC ARTHROPATHY
     Dosage: 40 MG, WEEKLY (1/W)
     Route: 058
     Dates: start: 20090911, end: 20090921

REACTIONS (9)
  - Anger [Recovering/Resolving]
  - Hyperhidrosis [Recovering/Resolving]
  - Nausea [Recovering/Resolving]
  - Vomiting [Recovered/Resolved]
  - Paraesthesia [Recovered/Resolved]
  - Screaming [Recovering/Resolving]
  - Mental disorder [Recovering/Resolving]
  - Crying [Recovering/Resolving]
  - Fatigue [Recovering/Resolving]

NARRATIVE: CASE EVENT DATE: 200909
